FAERS Safety Report 9770289 (Version 1)
Quarter: 2013Q4

REPORT INFORMATION
  Report Type: Spontaneous
  Country: AU (occurrence: AU)
  Receive Date: 20131218
  Receipt Date: 20131218
  Transmission Date: 20140711
  Serious: Yes (Death)
  Sender: FDA-Public Use
  Company Number: AU-009507513-1312AUS006895

PATIENT
  Age: 37 Year
  Sex: Male

DRUGS (5)
  1. AVANZA [Suspect]
     Dosage: 60 MG, QD
     Route: 048
  2. SEREPAX [Concomitant]
     Dosage: 30 MG, QD
  3. SEROQUEL XR [Concomitant]
     Dosage: 300 MG, QD
  4. STRATTERA [Concomitant]
     Indication: ATTENTION DEFICIT/HYPERACTIVITY DISORDER
     Dosage: UNK, QD
  5. STRATTERA [Concomitant]
     Dosage: 25 MG, UNK

REACTIONS (4)
  - Intentional overdose [Fatal]
  - Anxiety [Fatal]
  - Depression [Fatal]
  - Completed suicide [Fatal]
